FAERS Safety Report 5090874-6 (Version None)
Quarter: 2006Q3

REPORT INFORMATION
  Report Type: 
  Country: None (occurrence: None)
  Receive Date: 20060823
  Receipt Date: 20060810
  Transmission Date: 20061208
  Serious: Yes (Other)
  Sender: FDA-Public Use
  Company Number: 2006098327

PATIENT
  Age: 16 Year
  Sex: Female

DRUGS (2)
  1. GABAPENTIN [Suspect]
     Indication: EPILEPSY
     Dosage: (300 MG)
  2. EPILIM (VALPROATE SODIUM) [Concomitant]

REACTIONS (2)
  - AGGRESSION [None]
  - PHARMACEUTICAL PRODUCT COMPLAINT [None]
